FAERS Safety Report 7755524-6 (Version None)
Quarter: 2011Q3

REPORT INFORMATION
  Report Type: 
  Country: None (occurrence: None)
  Receive Date: 20110914
  Receipt Date: 20110907
  Transmission Date: 20111222
  Serious: Yes (Death)
  Sender: FDA-Public Use
  Company Number: ABR_00233_2011

PATIENT
  Sex: Female
  Weight: 27.5 kg

DRUGS (13)
  1. ERYTHROCIN [Suspect]
     Indication: BRONCHIOLITIS
     Dosage: 600 MG, (200 , 3 IN 1 D) ORAL
     Route: 048
     Dates: start: 19920101, end: 20060629
  2. PIMOBENDAM [Concomitant]
  3. THEOPHYLLINE [Concomitant]
  4. TIOTROPIUM BROMIDE MONOHDRATE [Concomitant]
  5. DOSPYRAMIDE [Concomitant]
  6. FUROSEMIDE [Concomitant]
  7. RABEPRAZOLE SODIUM [Concomitant]
  8. URSODIOL [Concomitant]
  9. CLARITHROMYCIN [Suspect]
     Indication: BRONCHIOLITIS
     Dosage: 200 MG, (1 IN 1 D) ORAL, (800 MG, 800MG (400 MG, 2 IN 1 D) ORAL
     Route: 048
     Dates: start: 20050919, end: 20061016
  10. CLARITHROMYCIN [Suspect]
     Indication: BRONCHIOLITIS
     Dosage: 200 MG, (1 IN 1 D) ORAL, (800 MG, 800MG (400 MG, 2 IN 1 D) ORAL
     Route: 048
     Dates: start: 20060630, end: 20060918
  11. ZOLPIDEM TARTRATE [Concomitant]
  12. ISOSORBIDE DINITRATE [Concomitant]
  13. RADIOTHERAPY [Concomitant]

REACTIONS (6)
  - DEPRESSED LEVEL OF CONSCIOUSNESS [None]
  - ARRHYTHMIA [None]
  - CHEST PAIN [None]
  - COR PULMONALE [None]
  - VENTRICULAR TACHYCARDIA [None]
  - RESPIRATORY ARREST [None]
